FAERS Safety Report 12077254 (Version 1)
Quarter: 2016Q1

REPORT INFORMATION
  Report Type: Spontaneous
  Country: TR (occurrence: TR)
  Receive Date: 20160215
  Receipt Date: 20160215
  Transmission Date: 20160526
  Serious: Yes (Hospitalization, Other)
  Sender: FDA-Public Use
  Company Number: TR-B.I. PHARMACEUTICALS,INC./RIDGEFIELD-2016-BI-07202BI

PATIENT
  Age: 80 Year
  Sex: Female

DRUGS (7)
  1. LEVODOPA/BENSERAZIDE [Concomitant]
     Active Substance: BENSERAZIDE\LEVODOPA
     Indication: PARKINSON^S DISEASE
     Dosage: DOSE PER APPLICATION: 200/50MG; DAILY DOSE: 800/200MG
     Route: 065
  2. MEMANTINE. [Concomitant]
     Active Substance: MEMANTINE
     Indication: PARKINSON^S DISEASE
     Dosage: 20 MG
     Route: 065
  3. SIFROL [Suspect]
     Active Substance: PRAMIPEXOLE
     Indication: PARKINSON^S DISEASE
     Dosage: 4 MG
     Route: 065
  4. LEVODOPA/BENSERAZIDE [Concomitant]
     Active Substance: BENSERAZIDE\LEVODOPA
     Dosage: SUSTAINED RELEASE; DOSE PER APPLICATION: 100/25MG; DAILY DOSE: 200/50MG
     Route: 065
  5. LEVODOPA/BENSERAZIDE [Concomitant]
     Active Substance: BENSERAZIDE\LEVODOPA
     Dosage: DOSE PER APPLICATION: 50/12.5MG; DAILY DOSE: 100/25 MG
     Route: 065
  6. LEVODOPA/CARBIDOPA/ENTACAPONE [Concomitant]
     Active Substance: CARBIDOPA\ENTACAPONE\LEVODOPA
     Indication: PARKINSON^S DISEASE
     Dosage: DOSE PER APPLICATION: 150/37.5/200MG; DAILY DOSE: 300/75/400 MG
     Route: 065
  7. SIFROL [Suspect]
     Active Substance: PRAMIPEXOLE
     Dosage: 2 MG
     Route: 065

REACTIONS (3)
  - Asthma [Unknown]
  - Catatonia [Recovered/Resolved]
  - Pneumonia aspiration [Unknown]
